FAERS Safety Report 4595397-6 (Version None)
Quarter: 2005Q1

REPORT INFORMATION
  Report Type: 
  Country: None (occurrence: None)
  Receive Date: 20050228
  Receipt Date: 20050228
  Transmission Date: 20050727
  Serious: Yes (Life-Threatening, Hospitalization)
  Sender: FDA-Public Use
  Company Number: None

PATIENT
  Sex: Female
  Weight: 78.4723 kg

DRUGS (2)
  1. ZITHROMYCIN (Z PACK) [Suspect]
     Indication: COUGH
     Dosage: 500 MG 1ST DAY 250 MG 2,3,4, 5TH DAY
     Dates: start: 20041002, end: 20041006
  2. ZITHROMYCIN (Z PACK) [Suspect]
     Indication: UPPER RESPIRATORY TRACT INFECTION
     Dosage: 500 MG 1ST DAY 250 MG 2,3,4, 5TH DAY
     Dates: start: 20041002, end: 20041006

REACTIONS (3)
  - ELECTROCARDIOGRAM QT CORRECTED INTERVAL PROLONGED [None]
  - SYNCOPE [None]
  - TACHYCARDIA [None]
